FAERS Safety Report 9825845 (Version 1)
Quarter: 2014Q1

REPORT INFORMATION
  Report Type: Spontaneous
  Country: US (occurrence: None)
  Receive Date: 20140115
  Receipt Date: 20140115
  Transmission Date: 20141002
  Serious: Yes (Other)
  Sender: FDA-Public Use
  Company Number: 001653396A

PATIENT
  Age: 63 Year
  Sex: Female

DRUGS (10)
  1. MB* ANTIOXIDANT DAY CREME SPF 20 [Suspect]
     Dosage: ONCE DAILY DERMAL
     Dates: start: 20131129, end: 20131130
  2. MB* SKIN BRIGHTENING DECOLLETE+NECK TREATMENT SPF 15 [Suspect]
     Dosage: ONCE DAILY DERMAL
     Dates: start: 20131129, end: 20131130
  3. LAMICTAL [Concomitant]
  4. NEURONTIN [Concomitant]
  5. BACLOFEN [Concomitant]
  6. OXCARBAZEPINE [Concomitant]
  7. INOSITOL [Concomitant]
  8. ZOLOFT [Concomitant]
  9. SIMVASTATIN [Concomitant]
  10. LISINOPRIL [Concomitant]

REACTIONS (3)
  - Hypersensitivity [None]
  - Rash pruritic [None]
  - Rash papular [None]
